FAERS Safety Report 21855437 (Version 1)
Quarter: 2023Q1

REPORT INFORMATION
  Report Type: Spontaneous
  Country: US (occurrence: None)
  Receive Date: 20230112
  Receipt Date: 20230112
  Transmission Date: 20230417
  Serious: No
  Sender: FDA-Public Use
  Company Number: None

PATIENT
  Age: 39 Year
  Sex: Female

DRUGS (2)
  1. DUPIXENT [Suspect]
     Active Substance: DUPILUMAB
     Indication: Eczema
     Dosage: OTHER FREQUENCY : 300 MG Q 2 WEEKS;?
     Route: 058
     Dates: start: 20221003
  2. Dupixent 300mg/200ml PreFilled Pens [Concomitant]

REACTIONS (2)
  - Injection site erythema [None]
  - Injection site exfoliation [None]
